FAERS Safety Report 5513889-X (Version None)
Quarter: 2007Q4

REPORT INFORMATION
  Report Type: 
  Country: None (occurrence: None)
  Receive Date: 20071109
  Receipt Date: 20071109
  Transmission Date: 20080405
  Serious: Yes (Life-Threatening, Hospitalization)
  Sender: FDA-Public Use
  Company Number: None

PATIENT
  Age: 80 Year
  Sex: Female
  Weight: 54.9 kg

DRUGS (4)
  1. ROSIGLITAZONE [Suspect]
     Indication: DIABETES MELLITUS
     Dosage: 8MG DAILY PO
     Route: 048
  2. HUMULIN 70/30 [Concomitant]
  3. FENTANYL [Concomitant]
  4. OTC STOOL SOFTENER [Concomitant]

REACTIONS (6)
  - EYE OEDEMA [None]
  - FACE OEDEMA [None]
  - HYPERSENSITIVITY [None]
  - OROPHARYNGEAL SWELLING [None]
  - PHARYNGEAL OEDEMA [None]
  - SKIN EXFOLIATION [None]
